FAERS Safety Report 6590146-4 (Version None)
Quarter: 2010Q1

REPORT INFORMATION
  Report Type: 
  Country: None (occurrence: None)
  Receive Date: 20100219
  Receipt Date: 20100210
  Transmission Date: 20100710
  Serious: Yes (Other)
  Sender: FDA-Public Use
  Company Number: JP-ASTRAZENECA-2010SE07010

PATIENT
  Age: 22 Year
  Sex: Female

DRUGS (1)
  1. MEROPENEM [Suspect]
     Dates: start: 20051201, end: 20051214

REACTIONS (1)
  - DRUG ERUPTION [None]
